FAERS Safety Report 8595247-7 (Version None)
Quarter: 2012Q3

REPORT INFORMATION
  Report Type: 
  Country: None (occurrence: None)
  Receive Date: 20120815
  Receipt Date: 20120509
  Transmission Date: 20120928
  Serious: Yes (Other)
  Sender: FDA-Public Use
  Company Number: JP-009507513-1208JPN005251

PATIENT

DRUGS (16)
  1. TELAVIC [Suspect]
     Indication: HEPATITIS C
     Route: 048
     Dates: start: 20120418, end: 20120420
  2. DIGOXIN [Concomitant]
     Indication: CARDIAC FAILURE
     Route: 048
     Dates: end: 20120420
  3. LOSARTAN POTASSIUM AND HYDROCHLOROTHIAZIDE [Concomitant]
     Indication: HYPERTENSION
     Route: 048
     Dates: end: 20120420
  4. WARFARIN SODIUM [Concomitant]
     Indication: ATRIAL FIBRILLATION
     Route: 048
     Dates: end: 20120420
  5. BISOPROLOL FUMARATE [Concomitant]
     Indication: HYPERTENSION
     Route: 048
     Dates: end: 20120420
  6. LASIX [Concomitant]
     Indication: CARDIAC FAILURE
     Route: 048
     Dates: end: 20120420
  7. CONIEL [Concomitant]
     Route: 048
     Dates: start: 20120422
  8. WARFARIN SODIUM [Concomitant]
     Route: 048
     Dates: start: 20120422
  9. BISOPROLOL FUMARATE [Concomitant]
     Route: 048
     Dates: start: 20120422
  10. LOSARTAN POTASSIUM AND HYDROCHLOROTHIAZIDE [Concomitant]
     Route: 048
     Dates: end: 20120420
  11. PEG-INTRON [Suspect]
     Indication: HEPATITIS C
     Dosage: 1.5MCG/KG/WEEK
     Route: 058
     Dates: start: 20120418, end: 20120418
  12. DIGOXIN [Concomitant]
     Route: 048
     Dates: start: 20120422
  13. REBETOL [Suspect]
     Indication: HEPATITIS C
     Route: 048
     Dates: start: 20120418, end: 20120420
  14. LOSARTAN POTASSIUM AND HYDROCHLOROTHIAZIDE [Concomitant]
     Route: 048
     Dates: start: 20120422
  15. LASIX [Concomitant]
     Route: 048
     Dates: start: 20120422
  16. CONIEL [Concomitant]
     Indication: HYPERTENSION
     Route: 048
     Dates: end: 20120420

REACTIONS (5)
  - HAEMOGLOBIN DECREASED [None]
  - PYREXIA [None]
  - HEART RATE DECREASED [None]
  - RENAL FAILURE ACUTE [None]
  - BLOOD PRESSURE DECREASED [None]
